FAERS Safety Report 6689110-6 (Version None)
Quarter: 2010Q2

REPORT INFORMATION
  Report Type: 
  Country: None (occurrence: None)
  Receive Date: 20100420
  Receipt Date: 20100409
  Transmission Date: 20101027
  Serious: Yes (Disabling)
  Sender: FDA-Public Use
  Company Number: CA-ABBOTT-10P-028-0631879-00

PATIENT
  Age: 41 Year
  Sex: Female
  Weight: 108.05 kg

DRUGS (11)
  1. NORVIR [Suspect]
     Indication: HIV INFECTION
     Route: 065
     Dates: start: 20060512
  2. MK-0518 [Suspect]
     Indication: HIV INFECTION
     Route: 048
     Dates: start: 20090514
  3. LAMIVUDINE [Suspect]
     Indication: HIV INFECTION
     Dosage: 300 MG, DAILY
     Dates: start: 20060512
  4. VIREAD [Suspect]
     Indication: HIV INFECTION
     Dosage: 300 MG, DAILY
     Dates: start: 20060512
  5. REYATAZ [Suspect]
     Indication: HIV INFECTION
     Dosage: 300 MG, DAILY
     Dates: start: 20060512
  6. BLINDED THERAPY [Suspect]
     Indication: HIV INFECTION
     Dosage: 1098 DAY
     Dates: start: 20060512, end: 20090513
  7. ACETAMINOPHEN [Concomitant]
     Indication: DRUG USE FOR UNKNOWN INDICATION
     Dates: start: 20010101
  8. ACETAMINOPHEN [Concomitant]
     Dates: start: 20090301
  9. FERROUS SULFATE TAB [Concomitant]
     Indication: DRUG USE FOR UNKNOWN INDICATION
     Dates: start: 20090221
  10. IBUPROFEN [Concomitant]
     Indication: DRUG USE FOR UNKNOWN INDICATION
     Dates: start: 20040619
  11. ZOLMITRIPTAN [Concomitant]
     Indication: DRUG USE FOR UNKNOWN INDICATION
     Dates: start: 20081011

REACTIONS (1)
  - BREAST CANCER [None]
